FAERS Safety Report 18014028 (Version 3)
Quarter: 2020Q3

REPORT INFORMATION
  Report Type: Spontaneous
  Country: FR (occurrence: FR)
  Receive Date: 20200713
  Receipt Date: 20200807
  Transmission Date: 20201103
  Serious: Yes (Other)
  Sender: FDA-Public Use
  Company Number: FR-US-PROVELL PHARMACEUTICALS LLC-E2B_90078720

PATIENT
  Age: 36 Year
  Sex: Female

DRUGS (4)
  1. LEVOTHYROX 150 [Suspect]
     Active Substance: LEVOTHYROXINE
     Dosage: DOSE CHANGED FROM TIME TO TIME AND WAS INCREASED TO 175 UG
  2. LEVOTHYROX 150 [Suspect]
     Active Substance: LEVOTHYROXINE
     Indication: POST PROCEDURAL HYPOTHYROIDISM
     Dosage: OLD FORMULATION
  3. LEVOTHYROX 150 [Suspect]
     Active Substance: LEVOTHYROXINE
     Dosage: REINTRODUCED ON AN UNKNOWN DATE
  4. LEVOTHYROX 150 [Suspect]
     Active Substance: LEVOTHYROXINE
     Dosage: NEW FORMULATION

REACTIONS (8)
  - Discomfort [Not Recovered/Not Resolved]
  - Intentional dose omission [Unknown]
  - Weight increased [Unknown]
  - Suicidal ideation [Unknown]
  - Depression [Not Recovered/Not Resolved]
  - Fatigue [Unknown]
  - Mood swings [Unknown]
  - Infertility female [Unknown]
